FAERS Safety Report 17460571 (Version 3)
Quarter: 2025Q3

REPORT INFORMATION
  Report Type: Spontaneous
  Country: EU (occurrence: EU)
  Receive Date: 20200225
  Receipt Date: 20250805
  Transmission Date: 20251021
  Serious: Yes (Other)
  Sender: AUROBINDO
  Company Number: EU-002147023-NVSC2020CZ009713

PATIENT
  Age: 60 Year
  Sex: Male

DRUGS (11)
  1. FUROSEMIDE [Suspect]
     Active Substance: FUROSEMIDE
     Indication: Cardiac failure chronic
     Route: 065
     Dates: start: 201811
  2. FUROSEMIDE [Suspect]
     Active Substance: FUROSEMIDE
  3. FUROSEMIDE [Suspect]
     Active Substance: FUROSEMIDE
  4. NEBIVOLOL [Suspect]
     Active Substance: NEBIVOLOL
     Indication: Cardiac failure chronic
     Route: 065
  5. IVABRADINE [Suspect]
     Active Substance: IVABRADINE
     Indication: Cardiac failure chronic
     Route: 065
     Dates: start: 20190409, end: 20190416
  6. VILDAGLIPTIN [Suspect]
     Active Substance: VILDAGLIPTIN
     Indication: Product used for unknown indication
     Route: 065
  7. VILDAGLIPTIN [Suspect]
     Active Substance: VILDAGLIPTIN
     Route: 065
  8. SACUBITRIL\VALSARTAN [Suspect]
     Active Substance: SACUBITRIL\VALSARTAN
     Indication: Cardiac failure chronic
     Route: 065
     Dates: start: 20190314
  9. EPLERENONE [Suspect]
     Active Substance: EPLERENONE
     Indication: Cardiac failure chronic
     Route: 065
     Dates: start: 20190506
  10. EPLERENONE [Suspect]
     Active Substance: EPLERENONE
  11. EMPAGLIFLOZIN [Concomitant]
     Active Substance: EMPAGLIFLOZIN
     Indication: Product used for unknown indication
     Route: 065
     Dates: start: 20190424, end: 20190424

REACTIONS (5)
  - Sinus tachycardia [Not Recovered/Not Resolved]
  - Ventricular dyssynchrony [Unknown]
  - Extrasystoles [Unknown]
  - Dyspnoea [Unknown]
  - Product use in unapproved indication [Unknown]

NARRATIVE: CASE EVENT DATE: 20190124
